FAERS Safety Report 18713531 (Version 1)
Quarter: 2021Q1

REPORT INFORMATION
  Report Type: Report from Study
  Country: CA (occurrence: CA)
  Receive Date: 20210107
  Receipt Date: 20210107
  Transmission Date: 20210419
  Serious: Yes (Death)
  Sender: FDA-Public Use
  Company Number: CA-EISAI MEDICAL RESEARCH-EC-2021-086187

PATIENT
  Age: 74 Year
  Sex: Male
  Weight: 74.4 kg

DRUGS (1)
  1. LENVIMA [Suspect]
     Active Substance: LENVATINIB
     Indication: HEPATOCELLULAR CARCINOMA
     Route: 048
     Dates: start: 20201226, end: 20201227

REACTIONS (2)
  - Shock [Fatal]
  - Hepatic haemorrhage [Fatal]

NARRATIVE: CASE EVENT DATE: 20201230
